FAERS Safety Report 9359739 (Version 2)
Quarter: 2013Q2

REPORT INFORMATION
  Report Type: Spontaneous
  Country: IL (occurrence: IL)
  Receive Date: 20130621
  Receipt Date: 20130625
  Transmission Date: 20140414
  Serious: Yes (Hospitalization, Other)
  Sender: FDA-Public Use
  Company Number: IL-AMGEN-ISRSP2013043399

PATIENT
  Age: 70 Year
  Sex: Male
  Weight: 68 kg

DRUGS (9)
  1. XGEVA [Suspect]
     Indication: PROSTATE CANCER METASTATIC
     Dosage: 120 MG, QD
     Route: 065
     Dates: start: 20130512
  2. XGEVA [Suspect]
     Dosage: 120MG PER DAY
     Route: 065
     Dates: start: 20130512, end: 20130512
  3. METHOTREXATE [Concomitant]
     Dosage: 400 MG, QD
     Dates: start: 201304
  4. AVILAC                             /00163401/ [Concomitant]
     Dosage: 30,CC, QD
     Dates: start: 201304
  5. LIPITOR [Concomitant]
     Dosage: 20 MG, QD
  6. XATRAL [Concomitant]
     Dosage: 10 MG, QD
  7. COUMADIN                           /00014802/ [Concomitant]
  8. BONDORMIN [Concomitant]
  9. VITAMIN D                          /00107901/ [Concomitant]

REACTIONS (5)
  - Dermatitis [Recovered/Resolved]
  - Rash [Recovered/Resolved]
  - Cellulitis [Recovered/Resolved]
  - Blister [Unknown]
  - Pruritus [Unknown]
